FAERS Safety Report 4815339-5 (Version None)
Quarter: 2005Q4

REPORT INFORMATION
  Report Type: 
  Country: None (occurrence: None)
  Receive Date: 20051027
  Receipt Date: 20051018
  Transmission Date: 20060501
  Serious: Yes (Hospitalization)
  Sender: FDA-Public Use
  Company Number: 233806K05USA

PATIENT
  Age: 45 Year
  Sex: Female
  Weight: 51.7101 kg

DRUGS (6)
  1. REBIF [Suspect]
     Indication: MULTIPLE SCLEROSIS
     Dosage: SEE IMAGE
     Route: 058
     Dates: start: 20050730, end: 20050818
  2. REBIF [Suspect]
     Indication: MULTIPLE SCLEROSIS
     Dosage: SEE IMAGE
     Route: 058
     Dates: start: 20050818, end: 20050823
  3. SYNTHROID [Concomitant]
  4. ORAL CONTRACEPTIVE NOS                 (ORAL CONTRACEPTIVE NOS) [Concomitant]
  5. TYLENOL            (COTYLENOL) [Concomitant]
  6. IBUPROFEN [Concomitant]

REACTIONS (12)
  - ANOREXIA [None]
  - ASTHENIA [None]
  - BLOOD POTASSIUM DECREASED [None]
  - DEPRESSION [None]
  - DRY MOUTH [None]
  - DRY SKIN [None]
  - MALAISE [None]
  - MENTAL IMPAIRMENT [None]
  - RENAL FAILURE [None]
  - SKIN FISSURES [None]
  - WEIGHT DECREASED [None]
  - YELLOW SKIN [None]
